FAERS Safety Report 20326974 (Version 2)
Quarter: 2024Q4

REPORT INFORMATION
  Report Type: Spontaneous
  Country: PL (occurrence: PL)
  Receive Date: 20220112
  Receipt Date: 20241204
  Transmission Date: 20250115
  Serious: Yes (Hospitalization, Other)
  Sender: MYLAN
  Company Number: PL-Orion Corporation ORION PHARMA-SOLO2021-0013

PATIENT
  Age: 30 Year
  Sex: Female

DRUGS (16)
  1. NADROPARIN [Suspect]
     Active Substance: NADROPARIN
     Indication: Coagulopathy
     Dosage: 5700 INTERNATIONAL UNIT, QD
     Route: 065
  2. CEFTRIAXONE [Suspect]
     Active Substance: CEFTRIAXONE
     Indication: Pyoderma gangrenosum
     Dosage: 2 GRAM, QD
     Route: 065
  3. PANTOPRAZOLE [Suspect]
     Active Substance: PANTOPRAZOLE
     Indication: Pyoderma gangrenosum
     Dosage: 20 MILLIGRAM, QD
     Route: 065
  4. DEXAMETHASONE [Suspect]
     Active Substance: DEXAMETHASONE
     Indication: Pyoderma gangrenosum
     Dosage: 12 MILLIGRAM, QD
     Route: 042
  5. DEXAMETHASONE [Suspect]
     Active Substance: DEXAMETHASONE
     Dosage: DOSE WAS GRADUALLY REDUCED
     Route: 042
  6. CLOBETASOL [Suspect]
     Active Substance: CLOBETASOL
     Indication: Pyoderma gangrenosum
     Dosage: UNK
     Route: 061
  7. ETHAMSYLATE [Suspect]
     Active Substance: ETHAMSYLATE
     Indication: Pyoderma gangrenosum
     Dosage: UNK
     Route: 065
  8. MUPIROCIN [Suspect]
     Active Substance: MUPIROCIN
     Indication: Pyoderma gangrenosum
     Dosage: UNK
     Route: 061
  9. SULFAMETHOXAZOLE\TRIMETHOPRIM [Suspect]
     Active Substance: SULFAMETHOXAZOLE\TRIMETHOPRIM
     Indication: Pyoderma gangrenosum
     Dosage: UNK
  10. ACYCLOVIR [Suspect]
     Active Substance: ACYCLOVIR
     Indication: Pyoderma gangrenosum
     Dosage: UNK
     Route: 065
  11. CYCLOSPORINE [Suspect]
     Active Substance: CYCLOSPORINE
     Indication: Pyoderma gangrenosum
     Dosage: 4 MILLIGRAM/KILOGRAM, QD
     Route: 065
  12. CYCLOSPORINE [Suspect]
     Active Substance: CYCLOSPORINE
     Dosage: 3 MILLIGRAM/KILOGRAM, QD
     Route: 065
  13. METHYLPREDNISOLONE [Suspect]
     Active Substance: METHYLPREDNISOLONE
     Indication: Pyoderma gangrenosum
     Dosage: 12 MILLIGRAM, QD
     Route: 065
  14. CLOBETASOL PROPIONATE [Suspect]
     Active Substance: CLOBETASOL PROPIONATE
     Indication: Pyoderma gangrenosum
     Dosage: UNK
     Route: 061
  15. SODIUM CHLORIDE [Suspect]
     Active Substance: SODIUM CHLORIDE
     Indication: Pyoderma gangrenosum
     Dosage: UNK
     Route: 061
  16. MESALAMINE [Concomitant]
     Active Substance: MESALAMINE
     Indication: Pyoderma gangrenosum
     Dosage: UNK
     Route: 065

REACTIONS (5)
  - Colitis ulcerative [Unknown]
  - Drug ineffective [Recovering/Resolving]
  - Diarrhoea [Unknown]
  - Off label use [Unknown]
  - Product use in unapproved indication [Unknown]
